FAERS Safety Report 4286121-5 (Version None)
Quarter: 2004Q1

REPORT INFORMATION
  Report Type: 
  Country: None (occurrence: None)
  Receive Date: 20040120
  Receipt Date: 20031103
  Transmission Date: 20041129
  Serious: Yes (Hospitalization)
  Sender: FDA-Public Use
  Company Number: ENZ-ABE-147

PATIENT
  Age: 35 Year
  Sex: Female
  Weight: 82 kg

DRUGS (58)
  1. ABELCET [Suspect]
     Indication: PROPHYLAXIS
     Dosage: 430 MG Q24H IV
     Route: 042
     Dates: start: 20030926, end: 20030930
  2. ACETAMINOPHEN [Concomitant]
  3. AMIKACIN SULFATE [Concomitant]
  4. DIAZEPAM [Concomitant]
  5. INSULIN HUMAN REGULAR [Concomitant]
  6. LINEZOLID [Concomitant]
  7. MEDROXYPROGESTERONE ACETATE [Concomitant]
  8. MEROPENEM [Concomitant]
  9. METRONIDAZOLE [Concomitant]
  10. NYSTATIN [Concomitant]
  11. ONDANSETRON [Concomitant]
  12. OXCARBAZEPINE [Concomitant]
  13. PANTOPRAZOLE [Concomitant]
  14. PENTAMIDINE ISETHIONATE [Concomitant]
  15. SARGRAMOSTIM [Concomitant]
  16. VALACYCLOVIR HCL [Concomitant]
  17. VORICONAZOLE [Concomitant]
  18. AMIKACIN [Concomitant]
  19. AMLODIPINE BESYLATE [Concomitant]
  20. CEFTAZIDIME PENTAHYDRATE [Concomitant]
  21. CIPROFLOXACIN [Concomitant]
  22. CYCLOSPORINE [Concomitant]
  23. CYCLOSPORINE MODIFIED [Concomitant]
  24. DIPHENHYDRAMINE HCL [Concomitant]
  25. FUROSEMIDE [Concomitant]
  26. GLYCOPYRROLATE [Concomitant]
  27. GUAIFENESIN WITH CODEINE [Concomitant]
  28. HYDROMORPHONE HCL [Concomitant]
  29. LIDOCAINE HCL 2% JELLY [Concomitant]
  30. LOPERAMIDE HCL [Concomitant]
  31. LORAZEPAM [Concomitant]
  32. MAGNESIUM OXIDE [Concomitant]
  33. MAGNESIUM SULFATE [Concomitant]
  34. MEPERIDIEN HCL [Concomitant]
  35. METROPENEM [Concomitant]
  36. METHOTREXATE SODIUM [Concomitant]
  37. METOLAZONE [Concomitant]
  38. MORPHINE [Concomitant]
  39. ONDANSETRON HCL [Concomitant]
  40. TPN [Concomitant]
  41. POTASSIUM CHLORIDE [Concomitant]
  42. POTASSIUM PHOSPHATES [Concomitant]
  43. PROMETHAZINE HCL [Concomitant]
  44. RETEPLASE [Concomitant]
  45. SODIUM CHLORIDE [Concomitant]
  46. SODIUM PHOSPHATE [Concomitant]
  47. TORSEMIDE [Concomitant]
  48. VALACYCLOVIR HCL [Concomitant]
  49. VORICONAZOLE [Concomitant]
  50. CYCLOPHOSPHAMIDE [Concomitant]
  51. CYCLOSPORINE [Concomitant]
  52. METHYLPREDNISOLONE SOD SUCC [Concomitant]
  53. ONDANSETRON HCL [Concomitant]
  54. OXCARBAZEPINE [Concomitant]
  55. PERCOCET [Concomitant]
  56. CYCLOPHOSPHAMIDE [Concomitant]
  57. ATGAM [Concomitant]
  58. SODIUM CHLORIDE [Concomitant]

REACTIONS (3)
  - BLOOD CREATINE INCREASED [None]
  - BLOOD GLUCOSE INCREASED [None]
  - BLOOD UREA INCREASED [None]
